FAERS Safety Report 12329223 (Version 1)
Quarter: 2016Q2

REPORT INFORMATION
  Report Type: Spontaneous
  Country: CN (occurrence: CN)
  Receive Date: 20160503
  Receipt Date: 20160503
  Transmission Date: 20160815
  Serious: Yes (Death, Other)
  Sender: FDA-Public Use
  Company Number: CN-ROXANE LABORATORIES, INC.-2016-RO-00780RO

PATIENT
  Age: 77 Year
  Sex: Male

DRUGS (4)
  1. CYTARABINE. [Suspect]
     Active Substance: CYTARABINE
     Indication: ACUTE MYELOID LEUKAEMIA
     Route: 065
     Dates: start: 20131026
  2. PREDNISONE TABLETS USP, 5MG [Suspect]
     Active Substance: PREDNISONE
     Indication: ACUTE MYELOID LEUKAEMIA
     Route: 065
     Dates: start: 20131026
  3. VINDESINE [Suspect]
     Active Substance: VINDESINE
     Indication: ACUTE MYELOID LEUKAEMIA
     Route: 065
     Dates: start: 20131026
  4. IFOSFAMIDE. [Suspect]
     Active Substance: IFOSFAMIDE
     Indication: ACUTE MYELOID LEUKAEMIA
     Route: 065
     Dates: start: 20131026

REACTIONS (9)
  - Respiratory failure [Fatal]
  - Pyrexia [Unknown]
  - Agranulocytosis [Unknown]
  - Pleural effusion [Unknown]
  - Tuberculosis [Unknown]
  - Candida infection [Unknown]
  - Pneumonia [Unknown]
  - Anaemia [Unknown]
  - Pancytopenia [Unknown]

NARRATIVE: CASE EVENT DATE: 2013
